FAERS Safety Report 7788648-8 (Version None)
Quarter: 2011Q3

REPORT INFORMATION
  Report Type: 
  Country: None (occurrence: None)
  Receive Date: 20110930
  Receipt Date: 20110928
  Transmission Date: 20111222
  Serious: Yes (Death)
  Sender: FDA-Public Use
  Company Number: FR-BRISTOL-MYERS SQUIBB COMPANY-16078115

PATIENT

DRUGS (1)
  1. ORENCIA [Suspect]
     Dosage: RECEIVING FOR MORE THAN 1YR LAST INF:AUG2011

REACTIONS (1)
  - DEATH [None]
